FAERS Safety Report 9548703 (Version 1)
Quarter: 2013Q3

REPORT INFORMATION
  Report Type: Spontaneous
  Country: JP (occurrence: None)
  Receive Date: 20130919
  Receipt Date: 20130919
  Transmission Date: 20140515
  Serious: Yes (Death)
  Sender: FDA-Public Use
  Company Number: TCI2013A05042

PATIENT
  Age: 74 Year
  Sex: Male
  Weight: 50 kg

DRUGS (2)
  1. NESINA [Suspect]
     Indication: TYPE 2 DIABETES MELLITUS
     Route: 048
     Dates: start: 20110613, end: 20110817
  2. AVAPRO [Concomitant]

REACTIONS (3)
  - Oesophageal varices haemorrhage [None]
  - Hepatic cirrhosis [None]
  - Disease complication [None]
